FAERS Safety Report 7500408-1 (Version None)
Quarter: 2011Q2

REPORT INFORMATION
  Report Type: 
  Country: None (occurrence: None)
  Receive Date: 20110524
  Receipt Date: 20110224
  Transmission Date: 20111010
  Serious: No
  Sender: FDA-Public Use
  Company Number: US-BRISTOL-MYERS SQUIBB COMPANY-15568033

PATIENT
  Age: 5 Decade
  Sex: Male

DRUGS (3)
  1. CALCIUM CHANNEL BLOCKER [Suspect]
     Dosage: INCREASED THE DOSE (DOUBLE DOSE), THEN WITHDRAWN.
  2. METFORMIN HCL [Suspect]
  3. ONGLYZA [Suspect]

REACTIONS (1)
  - OEDEMA [None]
